FAERS Safety Report 4485773-4 (Version None)
Quarter: 2004Q4

REPORT INFORMATION
  Report Type: 
  Country: None (occurrence: None)
  Receive Date: 20041022
  Receipt Date: 20041012
  Transmission Date: 20050328
  Serious: Yes (Hospitalization)
  Sender: FDA-Public Use
  Company Number: AZAUS200400097

PATIENT
  Age: 78 Year
  Sex: Male
  Weight: 93.441 kg

DRUGS (4)
  1. VIDAZA [Suspect]
     Indication: MYELODYSPLASTIC SYNDROME
     Dosage: (DAILY X 7 DAYS), SUBCUTANEOUS
     Route: 058
     Dates: start: 20040831, end: 20040906
  2. LASIX [Concomitant]
  3. NEUPOGEN [Concomitant]
  4. TIMOLOL MALEATE [Concomitant]

REACTIONS (3)
  - ATRIAL FIBRILLATION [None]
  - INTESTINAL PERFORATION [None]
  - TRANSURETHRAL PROSTATECTOMY [None]
